FAERS Safety Report 10743345 (Version 3)
Quarter: 2016Q3

REPORT INFORMATION
  Report Type: Spontaneous
  Country: AR (occurrence: AR)
  Receive Date: 20150127
  Receipt Date: 20160930
  Transmission Date: 20161109
  Serious: Yes (Hospitalization, Other)
  Sender: FDA-Public Use
  Company Number: AR-AMGEN-ARGSP2015006802

PATIENT
  Age: 67 Year
  Sex: Female

DRUGS (1)
  1. ENBREL [Suspect]
     Active Substance: ETANERCEPT
     Indication: RHEUMATOID ARTHRITIS
     Dosage: 50 MG, WEEKLY
     Route: 065
     Dates: start: 20141002

REACTIONS (10)
  - Rectal haemorrhage [Not Recovered/Not Resolved]
  - Pyrexia [Recovered/Resolved]
  - Sensitivity to weather change [Not Recovered/Not Resolved]
  - Gastrointestinal disorder [Recovered/Resolved]
  - Infection [Not Recovered/Not Resolved]
  - Dehydration [Recovered/Resolved]
  - Colitis [Recovered/Resolved]
  - Gastrointestinal oedema [Not Recovered/Not Resolved]
  - Pain in extremity [Not Recovered/Not Resolved]
  - Arthralgia [Not Recovered/Not Resolved]

NARRATIVE: CASE EVENT DATE: 201412
